FAERS Safety Report 14101909 (Version 1)
Quarter: 2017Q4

REPORT INFORMATION
  Report Type: Spontaneous
  Country: US (occurrence: US)
  Receive Date: 20171018
  Receipt Date: 20171018
  Transmission Date: 20180321
  Serious: Yes (Congenital Anomaly, Other)
  Sender: FDA-Public Use
  Company Number: US-ABBVIE-17P-163-2132554-00

PATIENT
  Sex: Male

DRUGS (1)
  1. VALPROIC ACID. [Suspect]
     Active Substance: VALPROIC ACID
     Indication: MATERNAL EXPOSURE TIMING UNSPECIFIED
     Route: 064

REACTIONS (14)
  - Dysmorphism [Unknown]
  - Clinodactyly [Unknown]
  - Tracheomalacia [Unknown]
  - Craniosynostosis [Unknown]
  - Foetal exposure during pregnancy [Unknown]
  - Foetal anticonvulsant syndrome [Unknown]
  - Apnoea [Unknown]
  - Limb malformation [Unknown]
  - Micrognathia [Unknown]
  - Craniofacial deformity [Unknown]
  - Dyspnoea [Unknown]
  - Congenital nose malformation [Unknown]
  - Respiratory tract malformation [Unknown]
  - Prominent epicanthal folds [Unknown]
